FAERS Safety Report 7165867-5 (Version None)
Quarter: 2010Q4

REPORT INFORMATION
  Report Type: 
  Country: None (occurrence: None)
  Receive Date: 20101215
  Receipt Date: 20091222
  Transmission Date: 20110411
  Serious: No
  Sender: FDA-Public Use
  Company Number: US-AMGEN-KDL382236

PATIENT

DRUGS (1)
  1. ENBREL [Suspect]
     Indication: PSORIASIS
     Dosage: 50 MG, 2 TIMES/WK
     Route: 058

REACTIONS (3)
  - DIZZINESS [None]
  - RHINORRHOEA [None]
  - VISUAL IMPAIRMENT [None]
